FAERS Safety Report 11127947 (Version 1)
Quarter: 2015Q2

REPORT INFORMATION
  Report Type: Spontaneous
  Country: US (occurrence: US)
  Receive Date: 20150521
  Receipt Date: 20150521
  Transmission Date: 20150821
  Serious: Yes (Other)
  Sender: FDA-Public Use
  Company Number: US-TEVA-563204USA

PATIENT
  Sex: Female

DRUGS (1)
  1. COPAXONE [Suspect]
     Active Substance: GLATIRAMER ACETATE
     Dosage: FORM STRENGTH UNKNOWN
     Route: 065
     Dates: start: 20120401, end: 20150401

REACTIONS (8)
  - Injection site pruritus [Unknown]
  - Feeling abnormal [Unknown]
  - Food aversion [Unknown]
  - Pain [Unknown]
  - Weight decreased [Unknown]
  - Gallbladder oedema [Unknown]
  - Injection site swelling [Unknown]
  - Injection site erythema [Unknown]

NARRATIVE: CASE EVENT DATE: 2013
